FAERS Safety Report 19423733 (Version 3)
Quarter: 2022Q1

REPORT INFORMATION
  Report Type: Spontaneous
  Country: US (occurrence: US)
  Receive Date: 20210616
  Receipt Date: 20220113
  Transmission Date: 20220423
  Serious: No
  Sender: FDA-Public Use
  Company Number: US-PFIZER INC-2020190983

PATIENT
  Age: 80 Year
  Sex: Female
  Weight: 79.38 kg

DRUGS (4)
  1. LYRICA [Suspect]
     Active Substance: PREGABALIN
     Indication: Pain
     Dosage: 50 MG
  2. LYRICA [Suspect]
     Active Substance: PREGABALIN
     Indication: Radiculopathy
     Dosage: 125 MG, DAILY, (1 CAP IN AM,1CAP AT NOON,1 CAP IN PM, 2 CAP IN HS (TAKE AT BEDTIME)
     Route: 048
  3. LYRICA [Suspect]
     Active Substance: PREGABALIN
     Indication: Neuropathy peripheral
     Dosage: 25 MG
  4. LYRICA [Suspect]
     Active Substance: PREGABALIN
     Dosage: 125 MG, DAILY (25 MG, 1 CAP IN AM, 1 CAP AT NOON, 1 CAP IN PM, 2 CAPS AT BEDTIME)
     Route: 048

REACTIONS (8)
  - Diarrhoea [Unknown]
  - Intentional product misuse [Unknown]
  - Hypoacusis [Unknown]
  - Dizziness [Unknown]
  - Disorientation [Unknown]
  - Nausea [Unknown]
  - Eye disorder [Unknown]
  - Drug ineffective [Unknown]
